FAERS Safety Report 19684617 (Version 1)
Quarter: 2021Q3

REPORT INFORMATION
  Report Type: Spontaneous
  Country: US (occurrence: US)
  Receive Date: 20210811
  Receipt Date: 20210811
  Transmission Date: 20211014
  Serious: Yes (Hospitalization, Disabling, Other)
  Sender: FDA-Public Use
  Company Number: None

PATIENT
  Age: 30 Year
  Sex: Male
  Weight: 101.25 kg

DRUGS (4)
  1. LARIAM [Suspect]
     Active Substance: MEFLOQUINE HYDROCHLORIDE
     Indication: MALARIA PROPHYLAXIS
     Dosage: ?          QUANTITY:1 TABLET(S);OTHER FREQUENCY:WEEKLY;?
     Route: 048
     Dates: start: 19921209, end: 20081231
  2. ALEVE [Concomitant]
     Active Substance: NAPROXEN SODIUM
  3. EFFEXOR [Concomitant]
     Active Substance: VENLAFAXINE HYDROCHLORIDE
  4. IBUPROFEN. [Concomitant]
     Active Substance: IBUPROFEN

REACTIONS (37)
  - Sleep apnoea syndrome [None]
  - Major depression [None]
  - Nightmare [None]
  - Tinnitus [None]
  - Agitation [None]
  - Amnesia [None]
  - Vestibular disorder [None]
  - Encephalopathy [None]
  - Depression [None]
  - Homicidal ideation [None]
  - Suicidal ideation [None]
  - Fear of crowded places [None]
  - Liver disorder [None]
  - Paranoia [None]
  - Affective disorder [None]
  - Confusional state [None]
  - Photosensitivity reaction [None]
  - Mobility decreased [None]
  - Psychotic disorder [None]
  - Vertigo [None]
  - Migraine [None]
  - Dizziness [None]
  - Syncope [None]
  - Impulsive behaviour [None]
  - Hypervigilance [None]
  - Balance disorder [None]
  - Restlessness [None]
  - Seizure [None]
  - Hallucinations, mixed [None]
  - Disturbance in attention [None]
  - Dyspnoea [None]
  - Heart rate irregular [None]
  - Personality change [None]
  - Depersonalisation/derealisation disorder [None]
  - Anxiety [None]
  - Tremor [None]
  - Visual impairment [None]

NARRATIVE: CASE EVENT DATE: 19921209
